FAERS Safety Report 22859316 (Version 2)
Quarter: 2023Q4

REPORT INFORMATION
  Report Type: Report from Study
  Country: US (occurrence: US)
  Receive Date: 20230824
  Receipt Date: 20231211
  Transmission Date: 20240109
  Serious: No
  Sender: FDA-Public Use
  Company Number: US-002147023-NVSC2023US184205

PATIENT
  Sex: Male

DRUGS (1)
  1. ENTRESTO [Suspect]
     Active Substance: SACUBITRIL\VALSARTAN
     Indication: Product used for unknown indication
     Dosage: 24/26 MG
     Route: 065
     Dates: start: 20230728

REACTIONS (9)
  - Muscle spasms [Unknown]
  - Dry throat [Unknown]
  - Throat irritation [Unknown]
  - Fatigue [Unknown]
  - Skin disorder [Unknown]
  - Blood blister [Unknown]
  - Decreased appetite [Unknown]
  - Weight decreased [Unknown]
  - Glycosylated haemoglobin decreased [Unknown]
